FAERS Safety Report 6570008-9 (Version None)
Quarter: 2010Q1

REPORT INFORMATION
  Report Type: 
  Country: None (occurrence: None)
  Receive Date: 20100204
  Receipt Date: 20091231
  Transmission Date: 20100710
  Serious: Yes (Other)
  Sender: FDA-Public Use
  Company Number: US-BAXTER-2008BH003939

PATIENT
  Age: 79 Year
  Sex: Male
  Weight: 79 kg

DRUGS (12)
  1. HEPARIN SODIUM INJECTION [Suspect]
     Indication: ATRIAL FIBRILLATION
     Route: 042
     Dates: start: 20071224, end: 20071224
  2. HEPARIN SODIUM INJECTION [Suspect]
     Route: 042
     Dates: start: 20071228, end: 20071227
  3. HEPARIN SODIUM INJECTION [Suspect]
     Route: 042
     Dates: start: 20071228, end: 20071227
  4. HEPARIN SODIUM 5,000 UNITS IN DEXTROSE 5% [Suspect]
     Indication: ATRIAL FIBRILLATION
     Dates: start: 20071224, end: 20071224
  5. LOVENOX [Suspect]
     Indication: ANTICOAGULANT THERAPY
     Route: 065
     Dates: start: 20071201, end: 20080102
  6. WARFARIN SODIUM [Suspect]
     Indication: ANTICOAGULANT THERAPY
     Route: 065
     Dates: start: 20071201, end: 20080102
  7. ALTACE [Concomitant]
     Indication: DRUG USE FOR UNKNOWN INDICATION
     Route: 048
  8. PRAVACHOL [Concomitant]
     Indication: DRUG USE FOR UNKNOWN INDICATION
     Route: 048
  9. ASPIRIN [Concomitant]
     Indication: DRUG USE FOR UNKNOWN INDICATION
     Route: 048
  10. LOPRESSOR [Concomitant]
     Indication: DRUG USE FOR UNKNOWN INDICATION
     Route: 048
  11. PLAVIX [Concomitant]
     Indication: DRUG USE FOR UNKNOWN INDICATION
     Route: 048
  12. PERCOCET [Concomitant]
     Indication: PAIN
     Route: 048

REACTIONS (14)
  - ASTHENIA [None]
  - BLINDNESS TRANSIENT [None]
  - BLOOD PRESSURE DECREASED [None]
  - BRADYCARDIA [None]
  - DECREASED APPETITE [None]
  - DIZZINESS [None]
  - ERYTHEMA [None]
  - HAEMATOMA [None]
  - HYPOXIA [None]
  - NAUSEA [None]
  - PNEUMONIA [None]
  - TREMOR [None]
  - UNRESPONSIVE TO STIMULI [None]
  - VASCULAR PSEUDOANEURYSM [None]
